FAERS Safety Report 4986791-X (Version None)
Quarter: 2006Q2

REPORT INFORMATION
  Report Type: 
  Country: None (occurrence: None)
  Receive Date: 20060428
  Receipt Date: 20060405
  Transmission Date: 20061013
  Serious: Yes (Hospitalization)
  Sender: FDA-Public Use
  Company Number: KR-MERCK-0604KOR00009

PATIENT
  Age: 78 Year
  Sex: Female

DRUGS (6)
  1. FOSAMAX [Suspect]
     Indication: OSTEOPOROSIS
     Route: 048
     Dates: start: 20050831
  2. CALCIUM CARBONATE AND CHOLECALCIFEROL [Concomitant]
     Indication: OSTEOPOROSIS
     Route: 048
     Dates: start: 20050831
  3. DOMPERIDONE [Concomitant]
     Indication: GASTROINTESTINAL MOTILITY DISORDER
     Route: 048
     Dates: start: 20050831
  4. ALMAGATE [Concomitant]
     Indication: GASTRITIS
     Route: 048
     Dates: start: 20050831
  5. ALIBENDOL [Concomitant]
     Indication: DYSPEPSIA
     Route: 048
     Dates: start: 20050831
  6. MELOXICAM [Concomitant]
     Indication: OSTEOARTHRITIS
     Route: 048

REACTIONS (1)
  - DIZZINESS [None]
